FAERS Safety Report 9242255 (Version 1)
Quarter: 2013Q2

REPORT INFORMATION
  Report Type: Report from Study
  Country: DE (occurrence: DE)
  Receive Date: 20130419
  Receipt Date: 20130419
  Transmission Date: 20140414
  Serious: Yes (Life-Threatening, Hospitalization)
  Sender: FDA-Public Use
  Company Number: DE-BRISTOL-MYERS SQUIBB COMPANY-18777607

PATIENT
  Age: 56 Year
  Sex: Female
  Weight: 43 kg

DRUGS (6)
  1. CARBOPLATIN [Suspect]
     Indication: OVARIAN CANCER
     Route: 042
     Dates: start: 20130304
  2. PACLITAXEL [Suspect]
     Indication: OVARIAN CANCER
     Route: 042
     Dates: start: 20130304
  3. BEVACIZUMAB [Suspect]
     Indication: OVARIAN CANCER
     Route: 042
     Dates: start: 20130304
  4. PANTOZOL [Concomitant]
     Indication: PROPHYLAXIS
     Dosage: LAST DOSEPRIOR TO SAE:04APR2013
     Route: 048
     Dates: start: 20130207
  5. FENTANYL [Concomitant]
     Indication: PROPHYLAXIS
     Dosage: FENTANYL PLASTER:LAST DOSE PRIOR TO SAE:4APR13
     Dates: start: 20130115
  6. METOCLOPRAMIDE [Concomitant]
     Indication: PROPHYLAXIS
     Dosage: LAST DOSE PRIOR TO SAE:04APR13
     Dates: start: 20130115

REACTIONS (2)
  - Ileus [Not Recovered/Not Resolved]
  - Subileus [Recovered/Resolved]
